FAERS Safety Report 7878841-8 (Version None)
Quarter: 2011Q4

REPORT INFORMATION
  Report Type: 
  Country: None (occurrence: None)
  Receive Date: 20111101
  Receipt Date: 20111021
  Transmission Date: 20120403
  Serious: Yes (Death, Hospitalization)
  Sender: FDA-Public Use
  Company Number: ES-TYCO HEALTHCARE/MALLINCKRODT-T201102099

PATIENT
  Age: 69 Year
  Sex: Male

DRUGS (1)
  1. EXALGO [Suspect]
     Indication: BONE PAIN
     Dosage: 20 MG, QD
     Route: 048
     Dates: start: 20110601

REACTIONS (2)
  - RESPIRATORY TRACT INFECTION [None]
  - RESPIRATORY FAILURE [None]
